FAERS Safety Report 9369329 (Version 1)
Quarter: 2013Q2

REPORT INFORMATION
  Report Type: Spontaneous
  Country: US (occurrence: None)
  Receive Date: 20130625
  Receipt Date: 20130625
  Transmission Date: 20140414
  Serious: Yes (Hospitalization)
  Sender: FDA-Public Use
  Company Number: None

PATIENT
  Age: 79 Year
  Sex: Male
  Weight: 79.4 kg

DRUGS (1)
  1. WARFARIN [Suspect]
     Indication: ATRIAL FIBRILLATION
     Dosage: MG
     Route: 048
     Dates: start: 20070816, end: 20130322

REACTIONS (10)
  - Fall [None]
  - Vomiting [None]
  - Hypotension [None]
  - Haemoglobin decreased [None]
  - International normalised ratio increased [None]
  - Haemorrhage [None]
  - Oncologic complication [None]
  - Mass [None]
  - Gastric ulcer [None]
  - Duodenal ulcer [None]
